FAERS Safety Report 5877320-7 (Version None)
Quarter: 2008Q3

REPORT INFORMATION
  Report Type: 
  Country: None (occurrence: None)
  Receive Date: 20080910
  Receipt Date: 20080826
  Transmission Date: 20090109
  Serious: Yes (Hospitalization)
  Sender: FDA-Public Use
  Company Number: US-AMGEN-US303924

PATIENT
  Sex: Male

DRUGS (18)
  1. SENSIPAR [Suspect]
     Indication: HYPERPARATHYROIDISM SECONDARY
     Dates: start: 20070101
  2. ALBUTEROL [Concomitant]
  3. XANAX [Concomitant]
  4. VANCOMYCIN HYDROCHLORIDE [Concomitant]
  5. FOLIC ACID/IODINE/MINERALS NOS/PROTEIN/VITAMINS NOS [Concomitant]
  6. DIFLUCAN [Concomitant]
  7. ACIDOPHILUS [Concomitant]
  8. IMODIUM [Concomitant]
  9. LACTULOSE [Concomitant]
  10. TYLENOL (CAPLET) [Concomitant]
  11. AMBIEN [Concomitant]
  12. INSULIN [Concomitant]
  13. CHOLESTYRAMINE [Concomitant]
  14. OMEPRAZOLE [Concomitant]
  15. METOPROLOL SUCCINATE [Concomitant]
  16. XOPENEX [Concomitant]
  17. DULCOLAX [Concomitant]
  18. PHENERGAN HCL [Concomitant]

REACTIONS (3)
  - BLOOD CALCIUM INCREASED [None]
  - BLOOD PARATHYROID HORMONE INCREASED [None]
  - OESOPHAGEAL CARCINOMA [None]
